FAERS Safety Report 4487869-X (Version None)
Quarter: 2004Q4

REPORT INFORMATION
  Report Type: 
  Country: None (occurrence: None)
  Receive Date: 20041026
  Receipt Date: 20041006
  Transmission Date: 20050328
  Serious: Yes (Hospitalization, Other)
  Sender: FDA-Public Use
  Company Number: USA040774002

PATIENT
  Age: 75 Year
  Sex: Female

DRUGS (6)
  1. EVISTA [Suspect]
     Indication: OSTEOPOROSIS
     Dates: start: 19990101, end: 20040526
  2. XANAX [Concomitant]
  3. SYNTHROID [Concomitant]
  4. GABITRIL [Concomitant]
  5. HYDROCHLOROTHIAZIDE [Concomitant]
  6. TOPROL-XL [Concomitant]

REACTIONS (14)
  - ANXIETY DISORDER [None]
  - AORTIC CALCIFICATION [None]
  - ARTERIOSCLEROSIS [None]
  - ARTHRALGIA [None]
  - ATHEROSCLEROSIS [None]
  - ATRIOVENTRICULAR BLOCK [None]
  - BACK PAIN [None]
  - CORONARY ARTERY DISEASE [None]
  - FEELING ABNORMAL [None]
  - HOT FLUSH [None]
  - MYOCARDIAL INFARCTION [None]
  - NAUSEA [None]
  - PAIN IN EXTREMITY [None]
  - SPINAL OSTEOARTHRITIS [None]
